FAERS Safety Report 20653950 (Version 20)
Quarter: 2025Q3

REPORT INFORMATION
  Report Type: Spontaneous
  Country: US (occurrence: US)
  Receive Date: 20220330
  Receipt Date: 20250806
  Transmission Date: 20251020
  Serious: Yes (Hospitalization, Other)
  Sender: PFIZER
  Company Number: US-PFIZER INC-202200427163

PATIENT
  Age: 67 Year
  Sex: Female

DRUGS (19)
  1. BOSULIF [Suspect]
     Active Substance: BOSUTINIB MONOHYDRATE
     Indication: Chronic myeloid leukaemia
     Dates: start: 20220502
  2. BOSULIF [Suspect]
     Active Substance: BOSUTINIB MONOHYDRATE
     Indication: Leukaemia
     Dates: start: 20220826, end: 202211
  3. BOSULIF [Suspect]
     Active Substance: BOSUTINIB MONOHYDRATE
     Dosage: EVERY NIGHT AT BEDTIME (QHS)
     Dates: start: 20221121
  4. BOSULIF [Suspect]
     Active Substance: BOSUTINIB MONOHYDRATE
     Dates: start: 20230109
  5. BOSULIF [Suspect]
     Active Substance: BOSUTINIB MONOHYDRATE
     Dates: start: 20230410
  6. BOSULIF [Suspect]
     Active Substance: BOSUTINIB MONOHYDRATE
     Dosage: 400 MG, 1X/DAY
     Route: 048
  7. BOSULIF [Suspect]
     Active Substance: BOSUTINIB MONOHYDRATE
     Dosage: 400 MG TAKE ONE TABLET ONCE PER DAY
  8. BOSULIF [Suspect]
     Active Substance: BOSUTINIB MONOHYDRATE
     Dosage: 400 MG TABLET BY MOUTH DAILY
     Route: 048
  9. ASPIRIN [Concomitant]
     Active Substance: ASPIRIN
  10. SIMVASTATIN [Concomitant]
     Active Substance: SIMVASTATIN
  11. ATORVASTATIN [Concomitant]
     Active Substance: ATORVASTATIN
     Indication: Blood cholesterol
     Dosage: 40 MG, 1X/DAY
  12. LEVOTHYROXINE [Concomitant]
     Active Substance: LEVOTHYROXINE
     Indication: Hypothyroidism
     Dosage: 50 UG, 1X/DAY
  13. NAPROXEN [Concomitant]
     Active Substance: NAPROXEN
     Indication: Spondylitis
     Dosage: 500 MG, 2X/DAY
  14. LORATADINE [Concomitant]
     Active Substance: LORATADINE
     Indication: Hypersensitivity
  15. VALACYCLOVIR [Concomitant]
     Active Substance: VALACYCLOVIR HYDROCHLORIDE
     Dosage: 1 G, 3X/DAY [1 GRAM BY MOUTH 3 TIMES A DAY FOR 7 DAYS]
     Route: 048
  16. FOLIC ACID [Concomitant]
     Active Substance: FOLIC ACID
  17. ASPIRIN [Concomitant]
     Active Substance: ASPIRIN
     Dosage: 81 MG, 1X/DAY
  18. VITAMIN D3 [Concomitant]
     Active Substance: CHOLECALCIFEROL
     Dosage: 500 MG, 1X/DAY
  19. BOSWELLIC ACID [Concomitant]
     Dosage: 1 MG, 1X/DAY

REACTIONS (16)
  - Vocal cord disorder [Unknown]
  - COVID-19 [Recovered/Resolved]
  - H1N1 influenza [Recovering/Resolving]
  - Hyperpyrexia [Unknown]
  - Malignant neoplasm progression [Unknown]
  - Chronic myeloid leukaemia [Unknown]
  - Fatigue [Unknown]
  - Discouragement [Unknown]
  - Stress [Unknown]
  - Feeling abnormal [Unknown]
  - Malaise [Unknown]
  - Dysphonia [Not Recovered/Not Resolved]
  - Insomnia [Unknown]
  - Feeling cold [Unknown]
  - Blood cholesterol abnormal [Unknown]
  - Sciatica [Not Recovered/Not Resolved]

NARRATIVE: CASE EVENT DATE: 20220101
